FAERS Safety Report 13255900 (Version 1)
Quarter: 2017Q1

REPORT INFORMATION
  Report Type: Spontaneous
  Country: US (occurrence: US)
  Receive Date: 20170221
  Receipt Date: 20170221
  Transmission Date: 20170428
  Serious: Yes (Other)
  Sender: FDA-Public Use
  Company Number: US-DRREDDYS-USA/USA/17/0087329

PATIENT

DRUGS (4)
  1. DOCETAXEL. [Suspect]
     Active Substance: DOCETAXEL
     Indication: CHEMOTHERAPY
     Route: 065
  2. TRASTUZUMAB [Interacting]
     Active Substance: TRASTUZUMAB
     Indication: HEPATITIS C
     Route: 065
  3. PERTUZUMAB [Interacting]
     Active Substance: PERTUZUMAB
     Indication: HEPATITIS C
     Route: 065
  4. RIBAVIRIN. [Interacting]
     Active Substance: RIBAVIRIN
     Indication: HEPATITIS C
     Route: 065

REACTIONS (3)
  - Fatigue [Unknown]
  - Drug interaction [Unknown]
  - Abdominal pain [Unknown]
